FAERS Safety Report 5393292-6 (Version None)
Quarter: 2007Q3

REPORT INFORMATION
  Report Type: 
  Country: None (occurrence: None)
  Receive Date: 20070723
  Receipt Date: 20070718
  Transmission Date: 20080115
  Serious: Yes (Other)
  Sender: FDA-Public Use
  Company Number: PHEH2007US00504

PATIENT
  Age: 34 Year
  Sex: Female

DRUGS (1)
  1. DIOVAN [Suspect]
     Indication: CARDIOMYOPATHY
     Dosage: 80 MG, QD
     Route: 048
     Dates: start: 20030101, end: 20070103

REACTIONS (3)
  - CAESAREAN SECTION [None]
  - DRUG EXPOSURE DURING PREGNANCY [None]
  - NORMAL NEWBORN [None]
